FAERS Safety Report 8760655 (Version 2)
Quarter: 2012Q4

REPORT INFORMATION
  Report Type: 
  Country: AU (occurrence: AU)
  Receive Date: 20120830
  Receipt Date: 20120907
  Transmission Date: 20130627
  Serious: Yes (Hospitalization)
  Sender: FDA-Public Use
  Company Number: AU-SHIRE-SPV1-2012-00783

PATIENT
  Age: 43 Year
  Sex: Female

DRUGS (1)
  1. MEZAVANT [Suspect]
     Indication: CROHN^S DISEASE
     Dosage: 1.2 g, 3x/day:tid
     Route: 065

REACTIONS (2)
  - No therapeutic response [Unknown]
  - Off label use [Unknown]
